FAERS Safety Report 25020374 (Version 1)
Quarter: 2025Q1

REPORT INFORMATION
  Report Type: Spontaneous
  Country: KR (occurrence: KR)
  Receive Date: 20250227
  Receipt Date: 20250227
  Transmission Date: 20250408
  Serious: Yes (Other)
  Sender: ELI LILLY AND COMPANY
  Company Number: KR-ELI_LILLY_AND_COMPANY-KR202502012879

PATIENT
  Age: 24 Year
  Sex: Female

DRUGS (15)
  1. CYMBALTA [Suspect]
     Active Substance: DULOXETINE HYDROCHLORIDE
     Indication: Neuralgia
     Dosage: 30 MG, BID
     Route: 065
     Dates: start: 201905
  2. CYMBALTA [Suspect]
     Active Substance: DULOXETINE HYDROCHLORIDE
     Dosage: 60 MG, BID
     Route: 065
     Dates: start: 202008, end: 202104
  3. CYMBALTA [Suspect]
     Active Substance: DULOXETINE HYDROCHLORIDE
     Dosage: 30 MG, BID
     Route: 065
     Dates: start: 202203, end: 202407
  4. NUCYNTA ER [Suspect]
     Active Substance: TAPENTADOL HYDROCHLORIDE
     Indication: Neuralgia
     Dosage: 50 MG, BID
     Route: 065
  5. NUCYNTA ER [Suspect]
     Active Substance: TAPENTADOL HYDROCHLORIDE
     Dosage: 100 MG, BID
     Route: 065
     Dates: end: 202010
  6. NUCYNTA ER [Suspect]
     Active Substance: TAPENTADOL HYDROCHLORIDE
     Dosage: 150 MG, BID
     Route: 065
     Dates: start: 202008, end: 202010
  7. OXYCODONE HYDROCHLORIDE [Suspect]
     Active Substance: OXYCODONE HYDROCHLORIDE
     Indication: Neuralgia
     Route: 065
     Dates: start: 201910
  8. OXYCODONE HYDROCHLORIDE [Suspect]
     Active Substance: OXYCODONE HYDROCHLORIDE
     Route: 065
     Dates: start: 202008
  9. OXYCODONE HYDROCHLORIDE [Suspect]
     Active Substance: OXYCODONE HYDROCHLORIDE
     Route: 065
     Dates: start: 202203
  10. OXYCODONE HYDROCHLORIDE [Suspect]
     Active Substance: OXYCODONE HYDROCHLORIDE
     Dosage: 5 MG, TID
     Route: 065
     Dates: start: 202002
  11. NALOXONE HYDROCHLORIDE\OXYCODONE HYDROCHLORIDE [Suspect]
     Active Substance: NALOXONE HYDROCHLORIDE\OXYCODONE HYDROCHLORIDE
     Indication: Neuralgia
     Dosage: 10/5MG, BID
     Route: 065
     Dates: start: 202010
  12. NALOXONE HYDROCHLORIDE\OXYCODONE HYDROCHLORIDE [Suspect]
     Active Substance: NALOXONE HYDROCHLORIDE\OXYCODONE HYDROCHLORIDE
     Dosage: 20/10MG, BID
     Route: 065
     Dates: start: 202010, end: 202207
  13. FENTANYL [Suspect]
     Active Substance: FENTANYL
     Indication: Neuralgia
     Route: 065
     Dates: start: 202203
  14. OXYCONTIN [Suspect]
     Active Substance: OXYCODONE HYDROCHLORIDE
     Indication: Neuralgia
     Dosage: 10 MG, TID
     Route: 065
     Dates: start: 202207
  15. NEURONTIN [Concomitant]
     Active Substance: GABAPENTIN
     Indication: Neuralgia
     Dosage: 300 MG, TID
     Route: 065
     Dates: start: 201908

REACTIONS (2)
  - Serotonin syndrome [Recovered/Resolved]
  - Complex regional pain syndrome [Not Recovered/Not Resolved]
